FAERS Safety Report 26006360 (Version 2)
Quarter: 2025Q4

REPORT INFORMATION
  Report Type: Spontaneous
  Country: US (occurrence: US)
  Receive Date: 20251106
  Receipt Date: 20251128
  Transmission Date: 20260119
  Serious: Yes (Hospitalization, Disabling)
  Sender: AUROBINDO
  Company Number: US-MLMSERVICE-20251017-PI678387-00079-1

PATIENT
  Age: 29 Year
  Sex: Male

DRUGS (4)
  1. FLUOXETINE [Interacting]
     Active Substance: FLUOXETINE HYDROCHLORIDE
     Indication: Product used for unknown indication
     Dosage: 20 MILLIGRAM, DAILY
     Route: 065
  2. RITONAVIR [Interacting]
     Active Substance: RITONAVIR
     Indication: COVID-19
     Dosage: UNK (NIRMATRELVIR 300 MG/RITONAVIR 100 MG TWICE A DAY)
     Route: 065
  3. CARBAMAZEPINE [Interacting]
     Active Substance: CARBAMAZEPINE
     Indication: Coffin-Lowry syndrome
     Dosage: 600 MILLIGRAM
     Route: 065
  4. CLONAZEPAM [Concomitant]
     Active Substance: CLONAZEPAM
     Indication: Product used for unknown indication
     Dosage: 0.5 MILLIGRAM, DAILY
     Route: 065

REACTIONS (4)
  - Gait disturbance [Recovering/Resolving]
  - Metabolic alkalosis [Recovering/Resolving]
  - Toxicity to various agents [Recovering/Resolving]
  - Drug interaction [Recovering/Resolving]
